FAERS Safety Report 6358431-9 (Version None)
Quarter: 2009Q3

REPORT INFORMATION
  Report Type: 
  Country: None (occurrence: None)
  Receive Date: 20090916
  Receipt Date: 20090911
  Transmission Date: 20100115
  Serious: Yes (Hospitalization)
  Sender: FDA-Public Use
  Company Number: US-GILEAD-2009-0024213

PATIENT
  Sex: Female
  Weight: 58.112 kg

DRUGS (11)
  1. LETAIRIS [Suspect]
     Indication: PULMONARY ARTERIAL HYPERTENSION
     Route: 048
     Dates: start: 20090324
  2. WARFARIN [Concomitant]
  3. LASIX [Concomitant]
  4. SPIRONOLACTONE [Concomitant]
  5. METOPROLOL TARTRATE [Concomitant]
  6. DIGOXIN [Concomitant]
  7. NITROLINGUAL [Concomitant]
  8. LOVASTATIN [Concomitant]
  9. GABAPENTIN [Concomitant]
  10. GLIMEPIRIDE [Concomitant]
  11. DICLOFENAC SODIUM [Concomitant]

REACTIONS (1)
  - LOCALISED INFECTION [None]
